FAERS Safety Report 8584187-5 (Version None)
Quarter: 2012Q3

REPORT INFORMATION
  Report Type: 
  Country: None (occurrence: None)
  Receive Date: 20120810
  Receipt Date: 20120531
  Transmission Date: 20120928
  Serious: No
  Sender: FDA-Public Use
  Company Number: US-009507513-2012SP023430

PATIENT

DRUGS (4)
  1. CLARITIN [Suspect]
     Indication: MEDICAL OBSERVATION
  2. CLARITIN [Suspect]
     Indication: SNEEZING
  3. CLARITIN [Suspect]
     Indication: RHINORRHOEA
     Dosage: 10 MG, QD
     Route: 048
     Dates: start: 20120315, end: 20120408
  4. CLARITIN [Suspect]
     Indication: EYE PRURITUS

REACTIONS (1)
  - NO THERAPEUTIC RESPONSE [None]
